FAERS Safety Report 5176680-2 (Version None)
Quarter: 2006Q4

REPORT INFORMATION
  Report Type: 
  Country: None (occurrence: None)
  Receive Date: 20061218
  Receipt Date: 20061207
  Transmission Date: 20070319
  Serious: Yes (Other)
  Sender: FDA-Public Use
  Company Number: GR-JNJFOC-20061104298

PATIENT
  Age: 36 Year
  Sex: Female
  Weight: 76 kg

DRUGS (5)
  1. REMICADE [Suspect]
     Indication: ANKYLOSING SPONDYLITIS
     Route: 042
  2. HUMIRA [Suspect]
     Indication: ANKYLOSING SPONDYLITIS
     Route: 058
  3. THYROHORMONE [Concomitant]
     Route: 048
  4. DIANICOTYL [Concomitant]
     Route: 048
  5. BESIX [Concomitant]
     Route: 048

REACTIONS (2)
  - EPILEPSY [None]
  - PETIT MAL EPILEPSY [None]
